FAERS Safety Report 12404926 (Version 1)
Quarter: 2016Q2

REPORT INFORMATION
  Report Type: Spontaneous
  Country: US (occurrence: US)
  Receive Date: 20160525
  Receipt Date: 20160525
  Transmission Date: 20160815
  Serious: No
  Sender: FDA-Public Use
  Company Number: ALCN2016US003782

PATIENT
  Age: 73 Year
  Sex: Female

DRUGS (1)
  1. PILOCARPINE HCL [Suspect]
     Active Substance: PILOCARPINE HYDROCHLORIDE
     Indication: PUPIL CONSTRICTION PROCEDURE
     Dosage: UNK
     Route: 047
     Dates: start: 20160414, end: 20160518

REACTIONS (1)
  - Paradoxical drug reaction [Unknown]

NARRATIVE: CASE EVENT DATE: 20160504
